FAERS Safety Report 13195796 (Version 1)
Quarter: 2017Q1

REPORT INFORMATION
  Report Type: Other
  Country: CN (occurrence: CN)
  Receive Date: 20170208
  Receipt Date: 20170208
  Transmission Date: 20170428
  Serious: Yes (Other)
  Sender: FDA-Public Use
  Company Number: CN-HETERO LABS LTD-1062868

PATIENT
  Age: 38 Year

DRUGS (1)
  1. EFAVIRENZ\ LAMIVUDINE \ TENOFOVIR  DISOPROXIL FUMARATE [Suspect]
     Active Substance: EFAVIRENZ\LAMIVUDINE\TENOFOVIR
     Indication: HIV INFECTION
     Route: 065

REACTIONS (1)
  - Osteoporosis [Unknown]
